FAERS Safety Report 23907090 (Version 1)
Quarter: 2024Q2

REPORT INFORMATION
  Report Type: Spontaneous
  Country: US (occurrence: US)
  Receive Date: 20240528
  Receipt Date: 20240528
  Transmission Date: 20240716
  Serious: No
  Sender: FDA-Public Use
  Company Number: US-ADVANZ PHARMA-202208005159

PATIENT

DRUGS (4)
  1. HYDROXYCHLOROQUINE [Suspect]
     Active Substance: HYDROXYCHLOROQUINE
     Indication: Psoriasis
     Dosage: UNK
  2. REMODULIN [Suspect]
     Active Substance: TREPROSTINIL
     Indication: Pulmonary arterial hypertension
     Dosage: UNK (CONTINUOUS)
     Route: 041
     Dates: start: 20120416
  3. REMODULIN [Suspect]
     Active Substance: TREPROSTINIL
     Dosage: 0.09 UG/KG (CONTINUOUS)
     Route: 041
  4. FOLIC ACID [Concomitant]
     Active Substance: FOLIC ACID
     Indication: Psoriasis
     Dosage: 1 G, QD

REACTIONS (2)
  - Cough [Unknown]
  - Psoriasis [Unknown]
